FAERS Safety Report 8591220-3 (Version None)
Quarter: 2012Q3

REPORT INFORMATION
  Report Type: 
  Country: None (occurrence: None)
  Receive Date: 20120813
  Receipt Date: 20110212
  Transmission Date: 20120928
  Serious: Yes (Other)
  Sender: FDA-Public Use
  Company Number: PT-ROCHE-1093071

PATIENT
  Age: 58 Year
  Sex: Female

DRUGS (3)
  1. PEGASYS [Suspect]
     Indication: PRODUCT USED FOR UNKNOWN INDICATION
     Route: 058
  2. COPEGUS [Suspect]
  3. COPEGUS [Suspect]
     Indication: PRODUCT USED FOR UNKNOWN INDICATION

REACTIONS (5)
  - PERICARDIAL EFFUSION [None]
  - FACE OEDEMA [None]
  - RESPIRATORY TRACT INFECTION [None]
  - ANAEMIA [None]
  - OEDEMA PERIPHERAL [None]
